FAERS Safety Report 10025351 (Version 1)
Quarter: 2014Q1

REPORT INFORMATION
  Report Type: Spontaneous
  Country: US (occurrence: None)
  Receive Date: 20140314
  Receipt Date: 20140314
  Transmission Date: 20141002
  Serious: Yes (Hospitalization)
  Sender: FDA-Public Use
  Company Number: 2014P1002011

PATIENT
  Age: 63 Year
  Sex: Female

DRUGS (1)
  1. PROPYLTHIOURACIL [Suspect]
     Indication: HYPERTHYROIDISM

REACTIONS (5)
  - Acute respiratory distress syndrome [None]
  - Dermatitis acneiform [None]
  - Rash pustular [None]
  - Blister [None]
  - Pulmonary toxicity [None]
